FAERS Safety Report 6743861-3 (Version None)
Quarter: 2010Q2

REPORT INFORMATION
  Report Type: 
  Country: None (occurrence: None)
  Receive Date: 20100527
  Receipt Date: 20100415
  Transmission Date: 20101027
  Serious: No
  Sender: FDA-Public Use
  Company Number: US-KINGPHARMUSA00001-K201000472

PATIENT
  Age: 91 Year
  Sex: Female

DRUGS (3)
  1. FLECTOR [Suspect]
     Dosage: UNK PATCH, UNK
     Route: 061
  2. MULTI-VITAMIN [Concomitant]
  3. HERBAL PREPARATION [Concomitant]

REACTIONS (1)
  - OEDEMA PERIPHERAL [None]
